FAERS Safety Report 5237632-7 (Version None)
Quarter: 2007Q1

REPORT INFORMATION
  Report Type: 
  Country: None (occurrence: None)
  Receive Date: 20070214
  Receipt Date: 20070205
  Transmission Date: 20070707
  Serious: Yes (Hospitalization, Other)
  Sender: FDA-Public Use
  Company Number: ES-JNJFOC-20070201414

PATIENT
  Age: 56 Year
  Sex: Male

DRUGS (3)
  1. REMICADE [Suspect]
     Indication: RHEUMATOID ARTHRITIS
     Dosage: 3 DOSES
     Route: 042
  2. ISONIAZID/PYRIDOXINE 150/25 [Concomitant]
     Indication: ANTIBIOTIC PROPHYLAXIS
     Route: 065
  3. URBASON [Concomitant]
     Indication: RHEUMATOID ARTHRITIS
     Route: 042

REACTIONS (3)
  - ARTHRALGIA [None]
  - DYSTHYMIC DISORDER [None]
  - PULMONARY TUBERCULOSIS [None]
